FAERS Safety Report 16429571 (Version 1)
Quarter: 2019Q2

REPORT INFORMATION
  Report Type: Spontaneous
  Country: MX (occurrence: MX)
  Receive Date: 20190614
  Receipt Date: 20190614
  Transmission Date: 20190711
  Serious: Yes (Death)
  Sender: FDA-Public Use
  Company Number: MX-ROCHE-2336714

PATIENT
  Age: 53 Year
  Sex: Female

DRUGS (1)
  1. KADCYLA [Suspect]
     Active Substance: ADO-TRASTUZUMAB EMTANSINE
     Indication: HER-2 POSITIVE BREAST CANCER
     Dosage: 3.6 MG/KG OF WEIGHT, DOSE, EVERY 3 WEEKS FOR APPROXIMATELY 19 MONTHS.
     Route: 065

REACTIONS (2)
  - Bile duct obstruction [Fatal]
  - Cholangitis [Fatal]

NARRATIVE: CASE EVENT DATE: 20190610
